FAERS Safety Report 6266702-X (Version None)
Quarter: 2009Q3

REPORT INFORMATION
  Report Type: 
  Country: None (occurrence: None)
  Receive Date: 20090714
  Receipt Date: 20071226
  Transmission Date: 20100115
  Serious: Yes (Other)
  Sender: FDA-Public Use
  Company Number: US-ASTRAZENECA-2006UW22668

PATIENT
  Age: 7499 Day
  Sex: Female
  Weight: 85.7 kg

DRUGS (26)
  1. SEROQUEL [Suspect]
     Indication: BIPOLAR DISORDER
     Route: 048
     Dates: start: 20000601, end: 20030101
  2. SEROQUEL [Suspect]
     Indication: DEPRESSION
     Route: 048
     Dates: start: 20000601, end: 20030101
  3. SEROQUEL [Suspect]
     Dosage: 100-200 MG
     Route: 048
     Dates: start: 20030716
  4. SEROQUEL [Suspect]
     Dosage: 100-200 MG
     Route: 048
     Dates: start: 20030716
  5. GEODON [Concomitant]
     Dosage: 20 MG TO 80 MG
     Dates: start: 20011015
  6. ZYPREXA [Concomitant]
     Dosage: 2.5 MG TO 10 MG
     Dates: start: 20000612
  7. LITHIUM CARBONATE [Concomitant]
     Route: 048
  8. TRAZODONE [Concomitant]
     Dosage: 50-100 MG
     Dates: start: 20000926
  9. PROZAC [Concomitant]
     Dosage: 10-20 MG
     Dates: start: 20000723
  10. CLONAZEPAM [Concomitant]
     Dates: start: 20000723
  11. EFFEXOR [Concomitant]
     Dates: start: 20000802
  12. METOPROLOL TARTRATE [Concomitant]
     Dates: start: 20070808
  13. FAMOTIDINE [Concomitant]
     Route: 048
  14. WELLBUTRIN [Concomitant]
     Dates: start: 20020604
  15. CONCERTA [Concomitant]
     Dates: start: 20020812
  16. AMBIEN [Concomitant]
     Dates: start: 20030211
  17. RANITIDINE [Concomitant]
     Dates: start: 20030528
  18. MONISTAT [Concomitant]
     Route: 065
  19. GLUCOTROL [Concomitant]
     Dates: start: 20030730
  20. MIRTAZAPINE [Concomitant]
     Dates: start: 20040507
  21. TRINESSA [Concomitant]
     Dates: start: 20060515
  22. NORETHINDRONE AND ETHINYL ESTRADIOL [Concomitant]
     Dates: start: 20060605
  23. NAPROXEN [Concomitant]
     Dates: start: 20070607
  24. TOPAMAX [Concomitant]
     Dates: start: 20010417
  25. ZOLOFT [Concomitant]
     Dates: start: 20010417
  26. GABITRIL [Concomitant]
     Dates: start: 20040507

REACTIONS (7)
  - DIABETES MELLITUS [None]
  - DIABETIC EYE DISEASE [None]
  - HAEMOGLOBIN DECREASED [None]
  - HYPOGLYCAEMIA [None]
  - MULTIPLE INJURIES [None]
  - TYPE 1 DIABETES MELLITUS [None]
  - TYPE 2 DIABETES MELLITUS [None]
